FAERS Safety Report 9681642 (Version 2)
Quarter: 2013Q4

REPORT INFORMATION
  Report Type: Spontaneous
  Country: US (occurrence: US)
  Receive Date: 20131111
  Receipt Date: 20131210
  Transmission Date: 20140711
  Serious: Yes (Other)
  Sender: FDA-Public Use
  Company Number: CHPA2013US016857

PATIENT
  Age: 86 Year
  Sex: Female

DRUGS (5)
  1. EX-LAX MAX STR LAX PILLS SENNA [Suspect]
     Indication: PROPHYLAXIS
     Dosage: 1 DF, QHS
     Route: 048
  2. EX-LAX MAX STR LAX PILLS SENNA [Suspect]
     Indication: OFF LABEL USE
  3. EX-LAX CHOCOLATE PIECES [Suspect]
     Indication: PROPHYLAXIS
     Dosage: 1 DF,QHS
     Route: 048
  4. EX-LAX CHOCOLATE PIECES [Suspect]
     Indication: OFF LABEL USE
  5. TUMS [Concomitant]
     Indication: MINERAL SUPPLEMENTATION
     Dosage: UNK, QD
     Route: 048
     Dates: start: 201310

REACTIONS (9)
  - Thyroid cancer [Recovering/Resolving]
  - Faecaloma [Unknown]
  - Visual impairment [Unknown]
  - VIIth nerve paralysis [Not Recovered/Not Resolved]
  - Extraocular muscle paresis [Not Recovered/Not Resolved]
  - Dysphonia [Unknown]
  - Oral disorder [Unknown]
  - Fatigue [Unknown]
  - Incorrect drug administration duration [Unknown]
